FAERS Safety Report 8080591-2 (Version None)
Quarter: 2012Q1

REPORT INFORMATION
  Report Type: 
  Country: None (occurrence: None)
  Receive Date: 20120130
  Receipt Date: 20120120
  Transmission Date: 20120608
  Serious: Yes (Disabling, Other)
  Sender: FDA-Public Use
  Company Number: JP-PFIZER INC-2011261655

PATIENT
  Sex: Female

DRUGS (1)
  1. SOLU-MEDROL [Suspect]
     Dosage: 1000 MG/DAY
     Route: 042

REACTIONS (9)
  - DYSURIA [None]
  - DYSCHEZIA [None]
  - BLOOD PRESSURE INCREASED [None]
  - RIB FRACTURE [None]
  - HYPOAESTHESIA [None]
  - MALAISE [None]
  - PARAESTHESIA [None]
  - BALANCE DISORDER [None]
  - MUSCULAR WEAKNESS [None]
